FAERS Safety Report 5199524-1 (Version None)
Quarter: 2006Q4

REPORT INFORMATION
  Report Type: 
  Country: None (occurrence: None)
  Receive Date: 20061229
  Receipt Date: 20061222
  Transmission Date: 20070319
  Serious: Yes (Other)
  Sender: FDA-Public Use
  Company Number: GBWYE433728NOV03

PATIENT
  Age: 32 Year
  Sex: Male

DRUGS (6)
  1. RAPAMUNE [Suspect]
     Indication: IMMUNOSUPPRESSANT DRUG THERAPY
     Dosage: SEE IMAGE
     Route: 048
     Dates: start: 20030828, end: 20030907
  2. RAPAMUNE [Suspect]
     Indication: IMMUNOSUPPRESSANT DRUG THERAPY
     Dosage: SEE IMAGE
     Route: 048
     Dates: start: 20030908
  3. PREDNISOLONE [Concomitant]
  4. RANITIDINE [Concomitant]
  5. AMLODIPINE [Concomitant]
  6. LABETALOL HCL [Concomitant]

REACTIONS (2)
  - DRUG LEVEL ABOVE THERAPEUTIC [None]
  - IMMUNOSUPPRESSANT DRUG LEVEL INCREASED [None]
